FAERS Safety Report 24313250 (Version 6)
Quarter: 2024Q4

REPORT INFORMATION
  Report Type: Spontaneous
  Country: CA (occurrence: CA)
  Receive Date: 20240912
  Receipt Date: 20241204
  Transmission Date: 20250115
  Serious: Yes (Other)
  Sender: PFIZER
  Company Number: CA-PFIZER INC-202400254428

PATIENT
  Age: 71 Year
  Sex: Female

DRUGS (6)
  1. ABRILADA [Suspect]
     Active Substance: ADALIMUMAB-AFZB
     Indication: Uveitis
     Dosage: 80 MG AT WEEK 0 AND 40MG EVERY OTHER WEEK BEGINNING AT WEEK 1
     Route: 058
     Dates: start: 20231028, end: 20231028
  2. ABRILADA [Suspect]
     Active Substance: ADALIMUMAB-AFZB
     Dosage: 80 MG AT WEEK 0 AND 40MG EVERY OTHER WEEK BEGINNING AT WEEK 1
     Route: 058
     Dates: start: 20231108, end: 2024
  3. ABRILADA [Suspect]
     Active Substance: ADALIMUMAB-AFZB
     Dosage: 40 MG, WEEKLY
     Route: 058
     Dates: start: 2024
  4. ABRILADA [Suspect]
     Active Substance: ADALIMUMAB-AFZB
     Dosage: 40 MG, WEEKLY
     Route: 058
     Dates: start: 20240825, end: 20240825
  5. METHOTREXATE [Concomitant]
     Active Substance: METHOTREXATE
     Indication: Uveitis
     Dosage: 20 MG, WEEKLY
  6. METHOTREXATE [Concomitant]
     Active Substance: METHOTREXATE
     Dosage: 1 DF, WEEKLY, DOSAGE INFO: UNKNOWN
     Route: 065

REACTIONS (3)
  - Knee arthroplasty [Unknown]
  - Drug ineffective [Unknown]
  - Off label use [Unknown]

NARRATIVE: CASE EVENT DATE: 20240101
